FAERS Safety Report 8780169 (Version 1)
Quarter: 2012Q4

REPORT INFORMATION
  Report Type: Spontaneous
  Country: US (occurrence: None)
  Receive Date: 20120831
  Receipt Date: 20120831
  Transmission Date: 20130627
  Serious: Yes (Disabling)
  Sender: FDA-Public Use
  Company Number: None

PATIENT
  Age: 64 Year
  Sex: Female
  Weight: 75.75 kg

DRUGS (1)
  1. CVS NASAL SPRAY [Suspect]
     Dosage: 2 to 3 sprays 
started 6/28 7/1
     Dates: start: 20120628, end: 20120701

REACTIONS (2)
  - Ageusia [None]
  - Anosmia [None]
